FAERS Safety Report 8325688-4 (Version None)
Quarter: 2012Q2

REPORT INFORMATION
  Report Type: 
  Country: None (occurrence: None)
  Receive Date: 20120501
  Receipt Date: 20120501
  Transmission Date: 20120825
  Serious: Yes (Life-Threatening)
  Sender: FDA-Public Use
  Company Number: None

PATIENT
  Sex: Male
  Weight: 68.038 kg

DRUGS (1)
  1. LAMIVUDINE (EPIVIR HBV) [Suspect]
     Indication: HIV INFECTION
     Dosage: 300 MG
     Route: 048
     Dates: start: 20120419, end: 20120424

REACTIONS (5)
  - PRODUCT SUBSTITUTION ISSUE [None]
  - TABLET PHYSICAL ISSUE [None]
  - PRODUCT QUALITY ISSUE [None]
  - PRODUCT COATING ISSUE [None]
  - BLOOD PRESSURE INCREASED [None]
